FAERS Safety Report 6019837-0 (Version None)
Quarter: 2008Q4

REPORT INFORMATION
  Report Type: 
  Country: None (occurrence: None)
  Receive Date: 20081224
  Receipt Date: 20081216
  Transmission Date: 20090506
  Serious: Yes (Hospitalization, Congenital Anomaly)
  Sender: FDA-Public Use
  Company Number: FR-JNJFOC-20081205432

PATIENT
  Sex: Female
  Weight: 4.46 kg

DRUGS (19)
  1. IMODIUM [Suspect]
     Indication: DRUG EXPOSURE DURING PREGNANCY
  2. CYTARABINE [Suspect]
  3. CYTARABINE [Suspect]
     Indication: DRUG EXPOSURE DURING PREGNANCY
  4. CERUBIDINE [Suspect]
     Indication: DRUG EXPOSURE DURING PREGNANCY
  5. TAZOCILLINE [Suspect]
     Indication: DRUG EXPOSURE DURING PREGNANCY
  6. VANCOMYCIN HCL [Suspect]
     Indication: DRUG EXPOSURE DURING PREGNANCY
  7. PLITICAN [Suspect]
     Indication: DRUG EXPOSURE DURING PREGNANCY
  8. SPASFON [Suspect]
     Indication: DRUG EXPOSURE DURING PREGNANCY
  9. DEBRIDAT [Suspect]
     Indication: DRUG EXPOSURE DURING PREGNANCY
  10. PRIMPERAN TAB [Suspect]
     Indication: DRUG EXPOSURE DURING PREGNANCY
  11. TRAMADOL HCL [Suspect]
     Indication: DRUG EXPOSURE DURING PREGNANCY
  12. PERFALGAN [Suspect]
     Indication: DRUG EXPOSURE DURING PREGNANCY
  13. ECONAZOLE NITRATE [Suspect]
     Indication: DRUG EXPOSURE DURING PREGNANCY
  14. ACUPAN [Suspect]
     Indication: DRUG EXPOSURE DURING PREGNANCY
  15. SMECTA [Suspect]
     Indication: DRUG EXPOSURE DURING PREGNANCY
  16. AMIKACIN [Suspect]
     Indication: DRUG EXPOSURE DURING PREGNANCY
  17. TARGOCID [Suspect]
     Indication: DRUG EXPOSURE DURING PREGNANCY
  18. ATARAX [Suspect]
     Indication: DRUG EXPOSURE DURING PREGNANCY
  19. TAVANIC [Suspect]
     Indication: DRUG EXPOSURE DURING PREGNANCY

REACTIONS (5)
  - ANAEMIA [None]
  - FOETAL GROWTH RETARDATION [None]
  - FOETAL HEART RATE DISORDER [None]
  - PERIVENTRICULAR LEUKOMALACIA [None]
  - PREMATURE BABY [None]
